FAERS Safety Report 4282174-9 (Version None)
Quarter: 2004Q1

REPORT INFORMATION
  Report Type: 
  Country: None (occurrence: None)
  Receive Date: 20040130
  Receipt Date: 20031002
  Transmission Date: 20041129
  Serious: Yes (Hospitalization)
  Sender: FDA-Public Use
  Company Number: NL-BRISTOL-MYERS SQUIBB COMPANY-12399747

PATIENT
  Age: 70 Year
  Sex: Male
  Weight: 103 kg

DRUGS (5)
  1. CISPLATIN [Suspect]
     Indication: BLADDER CANCER
     Dosage: 420 MG TOTAL DOSE FROM 26-JUL-2003 TO 13-SEP-2003  700 MG TOTAL DOSE FROM 26-JUL- TO 13-NOV-2003
     Dates: start: 20030913, end: 20030913
  2. GEMCITABINE [Suspect]
     Indication: BLADDER CANCER
     Dosage: 16000 MG TOTAL WEEKLY DOSE FROM 25JUL2003 TO 26SEP2003  22 G TOTAL GIVEN FROM 25-JUL- TO 12-NOV-2003
     Dates: start: 20030926, end: 20030926
  3. ATENOLOL [Concomitant]
  4. MONO-CEDOCARD [Concomitant]
     Dates: start: 20021101
  5. SEVREDOL [Concomitant]

REACTIONS (6)
  - CHEST PAIN [None]
  - DEHYDRATION [None]
  - METASTASES TO BONE [None]
  - MUCOSAL INFLAMMATION [None]
  - NAUSEA [None]
  - VOMITING [None]
